FAERS Safety Report 11340912 (Version 1)
Quarter: 2015Q3

REPORT INFORMATION
  Report Type: Spontaneous
  Country: US (occurrence: None)
  Receive Date: 20150629
  Receipt Date: 20150629
  Transmission Date: 20151125
  Serious: No
  Sender: FDA-Public Use
  Company Number: A-US2015-110918

PATIENT
  Age: 64 Year
  Sex: Female

DRUGS (6)
  1. ASPIRIN (ACETYLSALICYLIC ACID) [Concomitant]
     Active Substance: ASPIRIN
  2. AZATHIOPRINE. [Concomitant]
     Active Substance: AZATHIOPRINE
  3. LEXAPRO [Concomitant]
     Active Substance: ESCITALOPRAM OXALATE
  4. OPSUMIT [Suspect]
     Active Substance: MACITENTAN
     Indication: PULMONARY ARTERIAL HYPERTENSION
     Route: 048
     Dates: start: 20141003
  5. ALLEGRA (FEXOFENADINE HYDROCHLORIDE) [Concomitant]
  6. ZOCOR [Concomitant]
     Active Substance: SIMVASTATIN

REACTIONS (1)
  - Kidney infection [None]

NARRATIVE: CASE EVENT DATE: 201411
